FAERS Safety Report 6842962-9 (Version None)
Quarter: 2010Q3

REPORT INFORMATION
  Report Type: 
  Country: None (occurrence: None)
  Receive Date: 20100714
  Receipt Date: 20070811
  Transmission Date: 20110219
  Serious: No
  Sender: FDA-Public Use
  Company Number: US-PFIZER INC-2007067592

PATIENT
  Sex: Female
  Weight: 47.7 kg

DRUGS (7)
  1. CHANTIX [Suspect]
     Indication: SMOKING CESSATION THERAPY
     Dates: start: 20070802
  2. PROZAC [Concomitant]
  3. THYROID TAB [Concomitant]
  4. PREVACID [Concomitant]
  5. ANTIHYPERTENSIVES [Concomitant]
  6. FIORINAL [Concomitant]
  7. ESTROGENS [Concomitant]

REACTIONS (4)
  - CONSTIPATION [None]
  - DRUG INEFFECTIVE [None]
  - NAUSEA [None]
  - RETCHING [None]
